FAERS Safety Report 19021034 (Version 2)
Quarter: 2021Q1

REPORT INFORMATION
  Report Type: Spontaneous
  Country: CN (occurrence: CN)
  Receive Date: 20210317
  Receipt Date: 20210319
  Transmission Date: 20210420
  Serious: Yes (Hospitalization, Other)
  Sender: FDA-Public Use
  Company Number: CN-GILEAD-2021-0521060

PATIENT
  Age: 33 Year
  Sex: Male

DRUGS (1)
  1. AMBRISENTAN [Suspect]
     Active Substance: AMBRISENTAN
     Indication: PULMONARY ARTERIAL HYPERTENSION
     Dosage: 5 MG, QD
     Route: 048
     Dates: start: 201908

REACTIONS (3)
  - Expired product administered [Unknown]
  - Medical observation [Unknown]
  - Pulmonary artery therapeutic procedure [Unknown]

NARRATIVE: CASE EVENT DATE: 2020
